FAERS Safety Report 6920158-X (Version None)
Quarter: 2010Q3

REPORT INFORMATION
  Report Type: 
  Country: None (occurrence: None)
  Receive Date: 20100811
  Receipt Date: 20100802
  Transmission Date: 20110219
  Serious: Yes (Other)
  Sender: FDA-Public Use
  Company Number: FR-ELI_LILLY_AND_COMPANY-FR201006004708

PATIENT
  Sex: Male

DRUGS (2)
  1. GEMZAR [Suspect]
     Indication: LUNG SQUAMOUS CELL CARCINOMA STAGE UNSPECIFIED
     Dosage: 1250 MG/M2, UNKNOWN
     Route: 042
     Dates: start: 20100526, end: 20100603
  2. CISPLATIN [Concomitant]
     Indication: LUNG SQUAMOUS CELL CARCINOMA STAGE UNSPECIFIED
     Dosage: UNK, UNKNOWN
     Route: 042
     Dates: start: 20100526

REACTIONS (1)
  - THROMBOCYTOSIS [None]
